FAERS Safety Report 6920365-6 (Version None)
Quarter: 2010Q3

REPORT INFORMATION
  Report Type: 
  Country: None (occurrence: None)
  Receive Date: 20100803
  Receipt Date: 20100318
  Transmission Date: 20110219
  Serious: Yes (Other)
  Sender: FDA-Public Use
  Company Number: 2010SP016605

PATIENT
  Age: 39 Year
  Sex: Male

DRUGS (2)
  1. INTRON A [Suspect]
     Indication: MALIGNANT MELANOMA
     Dosage: 35.8 MIU UNK
     Dates: start: 20100308
  2. NORCO [Concomitant]

REACTIONS (2)
  - CONVULSION [None]
  - DRUG DOSE OMISSION [None]
